FAERS Safety Report 6146418-0 (Version None)
Quarter: 2009Q2

REPORT INFORMATION
  Report Type: 
  Country: None (occurrence: None)
  Receive Date: 20090403
  Receipt Date: 20090403
  Transmission Date: 20091009
  Serious: Yes (Other)
  Sender: FDA-Public Use
  Company Number: None

PATIENT
  Age: 55 Year
  Sex: Female
  Weight: 52.1637 kg

DRUGS (1)
  1. LISINOPRIL AND HYDROCHLOROTHIAZIDE [Suspect]
     Indication: HYPERTENSION
     Dosage: 20-25 MG 1 A DAY BY MOUTH
     Route: 048
     Dates: start: 20090224, end: 20090304

REACTIONS (2)
  - BLOOD PRESSURE INCREASED [None]
  - SWOLLEN TONGUE [None]
